FAERS Safety Report 19057398 (Version 1)
Quarter: 2021Q1

REPORT INFORMATION
  Report Type: Spontaneous
  Country: JP (occurrence: JP)
  Receive Date: 20210325
  Receipt Date: 20210325
  Transmission Date: 20210420
  Serious: Yes (Other)
  Sender: FDA-Public Use
  Company Number: JP-PFIZER INC-2021296667

PATIENT
  Age: 59 Year
  Sex: Male

DRUGS (1)
  1. MEROPENEM 0.5G PFIZER [Suspect]
     Active Substance: MEROPENEM
     Dosage: UNK
     Dates: start: 201911, end: 201911

REACTIONS (3)
  - Oculomucocutaneous syndrome [Unknown]
  - Stevens-Johnson syndrome [Unknown]
  - Thrombotic microangiopathy [Unknown]
